FAERS Safety Report 8244587-X (Version None)
Quarter: 2012Q1

REPORT INFORMATION
  Report Type: 
  Country: None (occurrence: None)
  Receive Date: 20120329
  Receipt Date: 20120319
  Transmission Date: 20120608
  Serious: Yes (Hospitalization)
  Sender: FDA-Public Use
  Company Number: US-MILLENNIUM PHARMACEUTICALS, INC.-2012-01976

PATIENT

DRUGS (4)
  1. LISINOPRIL HYDROCHLORTHIAZID [Concomitant]
     Indication: PRODUCT USED FOR UNKNOWN INDICATION
  2. VELCADE [Suspect]
     Indication: MULTIPLE MYELOMA
     Dosage: UNK
     Route: 042
     Dates: start: 20110201, end: 20110501
  3. NORVASC [Concomitant]
     Indication: PRODUCT USED FOR UNKNOWN INDICATION
     Dosage: 5 MG, UNK
  4. VELCADE [Suspect]
     Dosage: UNK
     Route: 058
     Dates: start: 20120314

REACTIONS (4)
  - DYSPNOEA [None]
  - ANAEMIA [None]
  - FLUID OVERLOAD [None]
  - RASH ERYTHEMATOUS [None]
